FAERS Safety Report 9153753 (Version 1)
Quarter: 2013Q1

REPORT INFORMATION
  Report Type: Spontaneous
  Country: DE (occurrence: None)
  Receive Date: 20130201
  Receipt Date: 20130201
  Transmission Date: 20140127
  Serious: Yes (Other)
  Sender: FDA-Public Use
  Company Number: AUR-APL-2013-01087

PATIENT
  Age: 36 Year
  Sex: Female
  Weight: 75 kg

DRUGS (4)
  1. PAROXETINE (PAROXETINE) [Suspect]
     Indication: SCHIZOPHRENIA
     Dosage: 40 MG (40 MG, 1 D), ORAL
     Route: 048
     Dates: start: 20110918, end: 20120131
  2. LEPONEX (CLOZAPINE) [Suspect]
     Dosage: 400 MG (400 MG, 1 D), ORAL
     Route: 048
     Dates: start: 20110908, end: 20120131
  3. FOLSAURE (FOLC ACID) [Concomitant]
  4. CYTOTEC (MISOPROSTOL) [Concomitant]

REACTIONS (3)
  - Maternal exposure during pregnancy [None]
  - Pregnancy [None]
  - Abortion induced [None]
